FAERS Safety Report 23063744 (Version 2)
Quarter: 2024Q1

REPORT INFORMATION
  Report Type: Spontaneous
  Country: US (occurrence: US)
  Receive Date: 20231013
  Receipt Date: 20240320
  Transmission Date: 20240410
  Serious: No
  Sender: FDA-Public Use
  Company Number: US-NOVEN PHARMACEUTICALS, INC.-2023-NOV-US000847

PATIENT
  Age: 24 Year
  Sex: Female

DRUGS (1)
  1. XELSTRYM [Suspect]
     Active Substance: DEXTROAMPHETAMINE
     Indication: Attention deficit hyperactivity disorder
     Dosage: 18 MG, DAILY
     Route: 062
     Dates: start: 202307

REACTIONS (1)
  - Application site rash [Recovered/Resolved]
